FAERS Safety Report 12710608 (Version 1)
Quarter: 2016Q3

REPORT INFORMATION
  Report Type: Report from Study
  Country: CA (occurrence: US)
  Receive Date: 20160902
  Receipt Date: 20160902
  Transmission Date: 20161109
  Serious: Yes (Hospitalization)
  Sender: FDA-Public Use
  Company Number: CA-PFIZER INC-2010031836

PATIENT
  Age: 66 Year
  Sex: Female
  Weight: 101 kg

DRUGS (4)
  1. IBUPROFEN. [Suspect]
     Active Substance: IBUPROFEN
     Indication: OSTEOARTHRITIS
     Dosage: UNK
     Route: 048
     Dates: start: 20071219, end: 20080923
  2. NEXIUM [Concomitant]
     Active Substance: ESOMEPRAZOLE MAGNESIUM
     Dosage: 40 MG, 1X/DAY
     Route: 048
     Dates: start: 20080304
  3. NEXIUM [Concomitant]
     Active Substance: ESOMEPRAZOLE MAGNESIUM
     Indication: PROPHYLAXIS
     Dosage: 20 MG, 1X/DAY
     Route: 048
     Dates: start: 20071219, end: 20080303
  4. IBUPROFEN. [Suspect]
     Active Substance: IBUPROFEN
     Indication: RHEUMATOID ARTHRITIS

REACTIONS (1)
  - Oedema peripheral [Unknown]

NARRATIVE: CASE EVENT DATE: 2009
